FAERS Safety Report 13608325 (Version 1)
Quarter: 2017Q2

REPORT INFORMATION
  Report Type: Spontaneous
  Country: US (occurrence: US)
  Receive Date: 20170602
  Receipt Date: 20170602
  Transmission Date: 20170830
  Serious: No
  Sender: FDA-Public Use
  Company Number: US-LEXICON PHARMACEUTICALS, INC-17-1606-00091

PATIENT
  Age: 55 Year
  Sex: Male

DRUGS (13)
  1. XANAX [Concomitant]
     Active Substance: ALPRAZOLAM
  2. FENTANYL. [Concomitant]
     Active Substance: FENTANYL
  3. METOPROLOL SUCCINATE. [Concomitant]
     Active Substance: METOPROLOL SUCCINATE
  4. TELOTRISTAT ETHYL [Suspect]
     Active Substance: TELOTRISTAT ETHYL
     Indication: CARCINOID SYNDROME
     Route: 048
     Dates: start: 20170331
  5. MORPHINE [Concomitant]
     Active Substance: MORPHINE
  6. DULOXETINE. [Concomitant]
     Active Substance: DULOXETINE
  7. PROLIA [Concomitant]
     Active Substance: DENOSUMAB
  8. LISINOPRIL. [Concomitant]
     Active Substance: LISINOPRIL
  9. OCTREOTIDE ACETATE. [Concomitant]
     Active Substance: OCTREOTIDE ACETATE
  10. DOXYCYCL [Concomitant]
  11. PHENERGAN [Concomitant]
     Active Substance: PROMETHAZINE HYDROCHLORIDE
  12. ZOFRAN [Concomitant]
     Active Substance: ONDANSETRON HYDROCHLORIDE
  13. ZOLPIDEM [Concomitant]
     Active Substance: ZOLPIDEM\ZOLPIDEM TARTRATE

REACTIONS (1)
  - Constipation [Unknown]

NARRATIVE: CASE EVENT DATE: 20170401
